FAERS Safety Report 6820077-3 (Version None)
Quarter: 2010Q3

REPORT INFORMATION
  Report Type: 
  Country: None (occurrence: None)
  Receive Date: 20100707
  Receipt Date: 20100628
  Transmission Date: 20110219
  Serious: Yes (Hospitalization)
  Sender: FDA-Public Use
  Company Number: B0663194A

PATIENT
  Age: 65 Year
  Sex: Female

DRUGS (8)
  1. ARIXTRA [Suspect]
     Indication: THROMBOSIS PROPHYLAXIS
     Dosage: 2.5MG PER DAY
     Route: 058
     Dates: start: 20100524, end: 20100601
  2. LIPITOR [Concomitant]
     Route: 048
  3. ADETPHOS [Concomitant]
     Route: 048
  4. HERBESSER [Concomitant]
     Route: 065
  5. LOXONIN [Concomitant]
     Route: 065
  6. MUCOSTA [Concomitant]
     Route: 048
  7. ASPIRIN [Concomitant]
     Route: 048
  8. PERSANTINE [Concomitant]
     Route: 065

REACTIONS (2)
  - ANAEMIA [None]
  - DUODENAL ULCER [None]
